FAERS Safety Report 6099377-3 (Version None)
Quarter: 2009Q1

REPORT INFORMATION
  Report Type: 
  Country: None (occurrence: None)
  Receive Date: 20090303
  Receipt Date: 20090218
  Transmission Date: 20090719
  Serious: Yes (Other)
  Sender: FDA-Public Use
  Company Number: US-PFIZER INC-2009175743

PATIENT
  Age: 54 Year
  Sex: Female
  Weight: 155 kg

DRUGS (3)
  1. ZOLOFT [Suspect]
     Indication: DEPRESSION
  2. ZOLOFT [Suspect]
     Indication: ANXIETY
  3. INSULIN [Concomitant]

REACTIONS (1)
  - EPILEPSY [None]
